FAERS Safety Report 9335232 (Version 2)
Quarter: 2013Q3

REPORT INFORMATION
  Report Type: Report from Study
  Country: AU (occurrence: AU)
  Receive Date: 20130606
  Receipt Date: 20130722
  Transmission Date: 20140515
  Serious: Yes (Hospitalization)
  Sender: FDA-Public Use
  Company Number: AU-GLAXOSMITHKLINE-Z0018839A

PATIENT
  Age: 26 Year
  Sex: Male
  Weight: 81.9 kg

DRUGS (4)
  1. TRAMETINIB [Suspect]
     Indication: MALIGNANT MELANOMA
     Dosage: 2MG PER DAY
     Route: 048
     Dates: start: 20130103
  2. DABRAFENIB [Suspect]
     Indication: MALIGNANT MELANOMA
     Dosage: 150MG TWICE PER DAY
     Route: 048
     Dates: start: 20130102
  3. PANADOL [Concomitant]
     Indication: PYREXIA
     Dosage: 1G AS REQUIRED
     Route: 048
     Dates: start: 20130102
  4. PANAFCORT [Concomitant]
     Indication: PYREXIA
     Dosage: 10MG PER DAY
     Route: 048
     Dates: start: 20130207, end: 20130212

REACTIONS (2)
  - Pyrexia [Recovered/Resolved]
  - Neutropenia [Recovered/Resolved]
